FAERS Safety Report 4448450-1 (Version None)
Quarter: 2004Q3

REPORT INFORMATION
  Report Type: 
  Country: None (occurrence: None)
  Receive Date: 20040729
  Receipt Date: 20040419
  Transmission Date: 20050211
  Serious: Yes (Hospitalization)
  Sender: FDA-Public Use
  Company Number: US-JNJFOC-20040404320

PATIENT
  Age: 32 Year
  Sex: Male

DRUGS (1)
  1. RISPERDAL CONSTA [Suspect]
     Indication: DRUG USE FOR UNKNOWN INDICATION
     Dosage: INTRA-MUSCULAR
     Route: 030

REACTIONS (1)
  - ADVERSE EVENT [None]
